FAERS Safety Report 10530563 (Version 2)
Quarter: 2014Q4

REPORT INFORMATION
  Report Type: Spontaneous
  Country: FR (occurrence: FR)
  Receive Date: 20141021
  Receipt Date: 20141112
  Transmission Date: 20150528
  Serious: Yes (Death)
  Sender: FDA-Public Use
  Company Number: FR-PFIZER INC-2014285867

PATIENT
  Age: 76 Year
  Sex: Male

DRUGS (1)
  1. ARGANOVA [Suspect]
     Active Substance: ARGATROBAN
     Indication: HEPARIN-INDUCED THROMBOCYTOPENIA
     Dosage: UNK

REACTIONS (2)
  - Overdose [Fatal]
  - Haemorrhage [Fatal]
